FAERS Safety Report 17314933 (Version 2)
Quarter: 2021Q1

REPORT INFORMATION
  Report Type: Spontaneous
  Country: US (occurrence: US)
  Receive Date: 20200124
  Receipt Date: 20210122
  Transmission Date: 20210419
  Serious: No
  Sender: FDA-Public Use
  Company Number: US-PCCINC-2019-PEL-000253

PATIENT

DRUGS (1)
  1. GABLOFEN [Suspect]
     Active Substance: BACLOFEN
     Indication: MUSCLE SPASTICITY
     Dosage: 1265.5 MICROGRAM PER DAY
     Route: 037

REACTIONS (2)
  - Therapeutic product ineffective [Recovered/Resolved]
  - Muscle tone disorder [Recovered/Resolved]

NARRATIVE: CASE EVENT DATE: 201905
